FAERS Safety Report 14108247 (Version 1)
Quarter: 2017Q4

REPORT INFORMATION
  Report Type: Spontaneous
  Country: AU (occurrence: AU)
  Receive Date: 20171019
  Receipt Date: 20171019
  Transmission Date: 20180321
  Serious: Yes (Disabling)
  Sender: FDA-Public Use
  Company Number: AU-009507513-1710AUS009612

PATIENT
  Age: 22 Year
  Sex: Male
  Weight: 66 kg

DRUGS (8)
  1. CYCLOPHOSPHAMIDE. [Suspect]
     Active Substance: CYCLOPHOSPHAMIDE
     Indication: ECZEMA
     Dosage: DOSE UNPECIFIED
     Route: 048
  2. MYCOPHENOLATE MOFETIL. [Suspect]
     Active Substance: MYCOPHENOLATE MOFETIL
     Indication: ECZEMA
     Dosage: 3 G, DAILY
  3. METHOTREXATE. [Suspect]
     Active Substance: METHOTREXATE
     Indication: ECZEMA
     Dosage: 30 MG, QW
     Route: 048
     Dates: start: 20111019, end: 20140317
  4. TACROLIMUS. [Suspect]
     Active Substance: TACROLIMUS
     Indication: ECZEMA
     Dosage: DOSE UNSPECIFIED
     Route: 048
  5. XOLAIR [Suspect]
     Active Substance: OMALIZUMAB
     Indication: ECZEMA
     Dosage: DOSE UNSPECIFIED, CYCLICAL (AT INJECTIONS FOR 6 MONTHS CYCLIC)
  6. SINGULAIR [Suspect]
     Active Substance: MONTELUKAST SODIUM
     Indication: ECZEMA
     Dosage: DOSE UNSPECIFIED
  7. IMURAN [Suspect]
     Active Substance: AZATHIOPRINE
     Indication: ECZEMA
     Dosage: 4 MG/KG, UNK
  8. CYCLOSPORINE. [Suspect]
     Active Substance: CYCLOSPORINE
     Indication: ECZEMA
     Dosage: 3 MG/KG, UNK

REACTIONS (3)
  - Impaired quality of life [Not Recovered/Not Resolved]
  - Drug ineffective [Not Recovered/Not Resolved]
  - Depressed mood [Not Recovered/Not Resolved]
